FAERS Safety Report 23815138 (Version 5)
Quarter: 2024Q3

REPORT INFORMATION
  Report Type: Spontaneous
  Country: US (occurrence: US)
  Receive Date: 20240503
  Receipt Date: 20240910
  Transmission Date: 20241016
  Serious: Yes (Other)
  Sender: PFIZER
  Company Number: US-PFIZER INC-PV202400055783

PATIENT
  Age: 76 Year
  Sex: Male

DRUGS (2)
  1. BRAFTOVI [Suspect]
     Active Substance: ENCORAFENIB
     Dosage: 450 MG (6 CAPSULES OF 75 MG), DAILY TAKE 6 CAPSULES DAILY
     Route: 048
  2. MEKTOVI [Suspect]
     Active Substance: BINIMETINIB
     Dosage: 45 MG, 2X/DAY TAKE 3 TABLETS IN THE MORNING + TAKE 3 TABLETS IN THE EVENING
     Route: 048

REACTIONS (2)
  - Second primary malignancy [Unknown]
  - Thyroid cancer [Unknown]
